FAERS Safety Report 11567615 (Version 1)
Quarter: 2015Q3

REPORT INFORMATION
  Report Type: Spontaneous
  Country: US (occurrence: US)
  Receive Date: 20150916
  Receipt Date: 20150916
  Transmission Date: 20151125
  Serious: No
  Sender: FDA-Public Use
  Company Number: US-ELI_LILLY_AND_COMPANY-US200907006248

PATIENT
  Age: 50 Year
  Sex: Female

DRUGS (13)
  1. FISH OIL [Concomitant]
     Active Substance: FISH OIL
     Dosage: 1 D/F, DAILY (1/D)
  2. FORTEO [Suspect]
     Active Substance: TERIPARATIDE
     Dates: start: 20090628, end: 20090717
  3. VITAMINS [Concomitant]
     Active Substance: VITAMINS
     Dosage: 2 D/F, DAILY (1/D)
  4. VITAMIN E /001105/ [Concomitant]
     Dosage: 1 D/F, DAILY (1/D)
  5. ESTRADIOL. [Concomitant]
     Active Substance: ESTRADIOL
     Indication: HORMONE THERAPY
     Dosage: 1 D/F, DAILY (1/D)
  6. CALCIUM PLUS D3 [Concomitant]
  7. NEXIUM [Concomitant]
     Active Substance: ESOMEPRAZOLE MAGNESIUM
     Dosage: 1 D/F, DAILY (1/D)
  8. CRANBERRY. [Concomitant]
     Active Substance: CRANBERRY
     Dosage: 1 D/F, DAILY (1/D)
  9. CO-Q10 [Concomitant]
     Dosage: 1 D/F, DAILY (1/D)
  10. VITAMIN D [Concomitant]
     Active Substance: CHOLECALCIFEROL
     Dosage: 1 D/F, DAILY (1/D)
  11. QUESTRAN [Concomitant]
     Active Substance: CHOLESTYRAMINE
     Indication: DIARRHOEA
     Dosage: 1.5 D/F, 3/W
  12. WELLBUTRIN [Concomitant]
     Active Substance: BUPROPION HYDROCHLORIDE
     Dosage: 1 D/F, DAILY (1/D)
  13. NIACIN. [Concomitant]
     Active Substance: NIACIN
     Dosage: 1 D/F, DAILY (1/D)

REACTIONS (3)
  - Chest discomfort [Not Recovered/Not Resolved]
  - Dizziness [Not Recovered/Not Resolved]
  - Chest pain [Unknown]

NARRATIVE: CASE EVENT DATE: 2009
